FAERS Safety Report 7916006-1 (Version None)
Quarter: 2011Q4

REPORT INFORMATION
  Report Type: 
  Country: None (occurrence: None)
  Receive Date: 20111115
  Receipt Date: 20111107
  Transmission Date: 20120403
  Serious: Yes (Hospitalization, Disabling)
  Sender: FDA-Public Use
  Company Number: CA-ASTRAZENECA-2011SE67211

PATIENT
  Age: 53 Year
  Sex: Male
  Weight: 95.3 kg

DRUGS (11)
  1. CALCIUM, MAGNESIUM [Concomitant]
  2. FOLIC ACID [Concomitant]
  3. LECITHIN [Concomitant]
  4. VITAMIN B6 [Concomitant]
  5. ASPIRIN [Concomitant]
  6. NIACIN [Concomitant]
  7. CRESTOR [Suspect]
     Route: 048
  8. METOPROLOL SUCCINATE [Concomitant]
  9. PLAVIX [Concomitant]
  10. RAMIPRIL [Concomitant]
  11. VITAMIN B-12 [Concomitant]

REACTIONS (9)
  - FATIGUE [None]
  - IMMOBILE [None]
  - MENTAL DISORDER [None]
  - MUSCLE ATROPHY [None]
  - MUSCULAR WEAKNESS [None]
  - TEMPERATURE INTOLERANCE [None]
  - MUSCLE SPASMS [None]
  - MYALGIA [None]
  - DEPRESSION [None]
